FAERS Safety Report 8303984-4 (Version None)
Quarter: 2012Q2

REPORT INFORMATION
  Report Type: 
  Country: None (occurrence: None)
  Receive Date: 20120423
  Receipt Date: 20120416
  Transmission Date: 20120825
  Serious: Yes (Life-Threatening)
  Sender: FDA-Public Use
  Company Number: JP-ASTELLAS-2012JP003304

PATIENT
  Age: 75 Year
  Sex: Female

DRUGS (1)
  1. VESICARE [Suspect]
     Dosage: UNK
     Route: 048
     Dates: start: 20120207, end: 20120307

REACTIONS (2)
  - NEUTROPHIL COUNT INCREASED [None]
  - ERYTHEMA MULTIFORME [None]
